FAERS Safety Report 14322140 (Version 7)
Quarter: 2018Q1

REPORT INFORMATION
  Report Type: Spontaneous
  Country: DE (occurrence: DE)
  Receive Date: 20171225
  Receipt Date: 20180315
  Transmission Date: 20180509
  Serious: Yes (Other)
  Sender: FDA-Public Use
  Company Number: DE-AUROBINDO-AUR-APL-2017-46900

PATIENT
  Age: 55 Year
  Sex: Female
  Weight: 70 kg

DRUGS (23)
  1. FRAGMIN [Suspect]
     Active Substance: DALTEPARIN SODIUM
     Dosage: 5000 IU, UNK
     Route: 065
  2. FRAGMIN [Suspect]
     Active Substance: DALTEPARIN SODIUM
     Dosage: 5000 INTERNATIONAL UNIT
     Dates: start: 201705, end: 20170519
  3. SEVOFLURANE. [Concomitant]
     Active Substance: SEVOFLURANE
     Dosage: ()
     Route: 042
  4. PROPOFOL. [Concomitant]
     Active Substance: PROPOFOL
     Indication: PRODUCT USED FOR UNKNOWN INDICATION
     Dosage: INTRAVEN?S W?HREND DER OPERATION ()
     Route: 042
  5. TRAMAL LONG [Suspect]
     Active Substance: TRAMADOL
     Indication: KNEE OPERATION
     Dosage: POSTOPERATIV
     Route: 048
     Dates: start: 20170516, end: 20170517
  6. PROPOFOL. [Concomitant]
     Active Substance: PROPOFOL
     Dosage: ()
     Route: 042
  7. DIPIDOLOR [Concomitant]
     Active Substance: PIRITRAMIDE
     Dosage: ()
     Route: 042
  8. DIPIDOLOR [Concomitant]
     Active Substance: PIRITRAMIDE
     Dosage: ()
     Route: 042
  9. PROPOFOL. [Concomitant]
     Active Substance: PROPOFOL
     Dosage: ()
     Route: 042
  10. PARACETAMOL [Suspect]
     Active Substance: ACETAMINOPHEN
     Dosage: ()
     Dates: start: 20170516, end: 20170517
  11. FRAGMIN [Suspect]
     Active Substance: DALTEPARIN SODIUM
     Indication: KNEE OPERATION
     Dosage: 5000 IU, UNK
     Route: 048
     Dates: start: 20171116, end: 20171119
  12. SEVOFLURANE. [Concomitant]
     Active Substance: SEVOFLURANE
     Indication: PRODUCT USED FOR UNKNOWN INDICATION
     Dosage: INTRAVEN?S W?HREND DER OPERATION ()
     Route: 042
  13. FENTANYL. [Concomitant]
     Active Substance: FENTANYL
     Indication: PRODUCT USED FOR UNKNOWN INDICATION
     Dosage: INTRAVEN?S W?HREND DER OPERATION ()
     Route: 042
  14. AKRINOR [Concomitant]
     Active Substance: CAFEDRINE HYDROCHLORIDE\THEODRENALINE
     Dosage: ()
     Route: 042
  15. FENTANYL. [Concomitant]
     Active Substance: FENTANYL
     Dosage: ()
     Route: 042
  16. AKRINOR [Concomitant]
     Active Substance: CAFEDRINE HYDROCHLORIDE\THEODRENALINE
     Dosage: ()
     Route: 042
  17. PARACETAMOL [Suspect]
     Active Substance: ACETAMINOPHEN
     Indication: KNEE OPERATION
     Dosage: ()
     Route: 065
  18. DIPIDOLOR [Concomitant]
     Active Substance: PIRITRAMIDE
     Indication: PRODUCT USED FOR UNKNOWN INDICATION
     Dosage: POSTOPERATIV INTRAVEN?S ()
     Route: 042
  19. FENTANYL. [Concomitant]
     Active Substance: FENTANYL
     Dosage: ()
     Route: 042
  20. AKRINOR [Concomitant]
     Active Substance: CAFEDRINE HYDROCHLORIDE\THEODRENALINE
     Indication: PRODUCT USED FOR UNKNOWN INDICATION
     Dosage: INTRAVEN?S W?HREND DER OPERATION ()
     Route: 042
  21. TRAMAL LONG [Suspect]
     Active Substance: TRAMADOL
     Dosage: 50 MG, UNK
     Route: 048
  22. PANTOZOL [Suspect]
     Active Substance: PANTOPRAZOLE SODIUM
     Indication: KNEE OPERATION
     Dosage: 20 MG, UNK
     Route: 065
     Dates: start: 20170516, end: 20170517
  23. SEVOFLURANE. [Concomitant]
     Active Substance: SEVOFLURANE
     Dosage: ()
     Route: 042

REACTIONS (15)
  - Condition aggravated [Recovered/Resolved]
  - Muscle spasms [Recovered/Resolved]
  - Bronchitis [Recovered/Resolved]
  - Joint swelling [Recovered/Resolved]
  - Nasopharyngitis [Recovered/Resolved]
  - Nausea [Recovered/Resolved]
  - Cough [Recovered/Resolved]
  - Bedridden [Recovered/Resolved]
  - Conjunctivitis [Recovered/Resolved]
  - Asthenia [Recovered/Resolved]
  - Cardiovascular disorder [Recovered/Resolved]
  - Pallor [Recovered/Resolved]
  - Intestinal dilatation [Recovered/Resolved]
  - Angioedema [Unknown]
  - Vomiting [Recovered/Resolved]

NARRATIVE: CASE EVENT DATE: 20170516
